FAERS Safety Report 9720212 (Version 2)
Quarter: 2013Q4

REPORT INFORMATION
  Report Type: Spontaneous
  Country: US (occurrence: US)
  Receive Date: 20131129
  Receipt Date: 20131204
  Transmission Date: 20140711
  Serious: Yes (Hospitalization)
  Sender: FDA-Public Use
  Company Number: US-JNJFOC-20131109225

PATIENT
  Age: 22 Year
  Sex: Male
  Weight: 87 kg

DRUGS (14)
  1. BENADRYL [Suspect]
     Route: 065
  2. BENADRYL [Suspect]
     Indication: SEDATION
     Route: 065
     Dates: start: 20131019
  3. ATIVAN [Suspect]
     Indication: AGITATION
     Dosage: Q4PRN
     Route: 048
     Dates: start: 20131019
  4. ATIVAN [Suspect]
     Indication: AGITATION
     Dosage: Q4PRN
     Route: 048
     Dates: start: 20131017
  5. HALDOL [Suspect]
     Indication: PSYCHOTIC DISORDER
     Route: 048
     Dates: start: 20131019
  6. HALDOL [Suspect]
     Indication: PSYCHOTIC DISORDER
     Route: 048
     Dates: start: 20131018, end: 20131019
  7. HALDOL [Suspect]
     Indication: SEDATION
     Route: 048
     Dates: start: 20131018, end: 20131019
  8. HALDOL [Suspect]
     Indication: SEDATION
     Route: 048
     Dates: start: 20131019
  9. PROLIXIN [Concomitant]
     Indication: SCHIZOPHRENIA
     Dosage: FOR 2 DAYS
     Route: 048
  10. TRAZODONE [Concomitant]
     Indication: INSOMNIA
     Dosage: QHS
     Route: 048
     Dates: start: 20131019
  11. COGENTIN [Concomitant]
     Indication: EXTRAPYRAMIDAL DISORDER
     Route: 065
     Dates: start: 20131017
  12. SEROQUEL [Concomitant]
     Indication: AGITATION
     Dosage: PRN
     Route: 048
     Dates: start: 20131018, end: 201310
  13. SEROQUEL [Concomitant]
     Indication: ANXIETY
     Dosage: PRN
     Route: 048
     Dates: start: 20131018, end: 201310
  14. ZYPREXA [Concomitant]
     Indication: SCHIZOPHRENIA
     Route: 065
     Dates: start: 20131024

REACTIONS (2)
  - Convulsion [Recovered/Resolved]
  - Psychotic disorder [Recovered/Resolved]
